FAERS Safety Report 4388167-5 (Version None)
Quarter: 2004Q2

REPORT INFORMATION
  Report Type: 
  Country: None (occurrence: None)
  Receive Date: 20040623
  Receipt Date: 20040608
  Transmission Date: 20050107
  Serious: Yes (Hospitalization)
  Sender: FDA-Public Use
  Company Number: USA040669571

PATIENT
  Age: 48 Year
  Sex: Female
  Weight: 159 kg

DRUGS (1)
  1. HUMULIN N [Suspect]
     Dates: start: 19980101

REACTIONS (2)
  - ASTHMA [None]
  - BLOOD GLUCOSE INCREASED [None]
